FAERS Safety Report 4736689-7 (Version None)
Quarter: 2005Q3

REPORT INFORMATION
  Report Type: 
  Country: None (occurrence: None)
  Receive Date: 20050804
  Receipt Date: 20050726
  Transmission Date: 20060218
  Serious: Yes (Hospitalization, Other)
  Sender: FDA-Public Use
  Company Number: 2005-01585

PATIENT
  Age: 60 Year
  Sex: Female
  Weight: 80 kg

DRUGS (4)
  1. INTEGRILIN [Suspect]
     Indication: MYOCARDIAL INFARCTION
     Dosage: 180.00 UG/KG, IV BOLUS; 2.00 UG/KG/MIN, IV DRIP
     Route: 040
     Dates: start: 20050725, end: 20050725
  2. INTEGRILIN [Suspect]
     Indication: MYOCARDIAL INFARCTION
     Dosage: 180.00 UG/KG, IV BOLUS; 2.00 UG/KG/MIN, IV DRIP
     Route: 040
     Dates: start: 20050725, end: 20050726
  3. HEPARIN [Suspect]
     Indication: ACUTE MYOCARDIAL INFARCTION
     Dates: start: 20050725
  4. ACETYLSALICYLIC ACID SRT [Concomitant]

REACTIONS (5)
  - ANEURYSM RUPTURED [None]
  - HYPERTENSION [None]
  - PERITONEAL HAEMORRHAGE [None]
  - RETROPERITONEAL HAEMORRHAGE [None]
  - TREATMENT NONCOMPLIANCE [None]
